FAERS Safety Report 9054314 (Version 3)
Quarter: 2013Q2

REPORT INFORMATION
  Report Type: Spontaneous
  Country: US (occurrence: US)
  Receive Date: 20130208
  Receipt Date: 20130523
  Transmission Date: 20140414
  Serious: Yes (Death, Hospitalization)
  Sender: FDA-Public Use
  Company Number: US-INCYTE CORPORATION-2013IN000043

PATIENT
  Age: 76 Year
  Sex: Male
  Weight: 81.63 kg

DRUGS (11)
  1. JAKAFI [Suspect]
     Indication: MYELOFIBROSIS
     Dosage: 15 MG BID ALTERNATING WITH 7.5 MG BID QOD
     Route: 048
     Dates: start: 20121029, end: 2012
  2. JAKAFI [Suspect]
     Dosage: NOT SPECIFIED (DOSE REDUCED)
     Route: 048
     Dates: start: 2012, end: 201212
  3. JAKAFI [Suspect]
     Dosage: 5 MG, BID
     Route: 048
     Dates: start: 201212, end: 20130131
  4. SINEMET [Concomitant]
  5. ULORIC [Concomitant]
  6. VITAMIN C [Concomitant]
  7. CENTRUM SILVER [Concomitant]
  8. ASPIRIN [Concomitant]
  9. TRAZODONE [Concomitant]
  10. LORAZEPAM [Concomitant]
  11. FLUOXETINE [Concomitant]

REACTIONS (11)
  - Malignant transformation [Fatal]
  - Disease progression [Not Recovered/Not Resolved]
  - Splenomegaly [Unknown]
  - Renal failure [Unknown]
  - Skin lesion [Recovering/Resolving]
  - Weight decreased [Unknown]
  - Fatigue [Unknown]
  - Wrong technique in drug usage process [Unknown]
  - No therapeutic response [Unknown]
  - Thrombocytopenia [Not Recovered/Not Resolved]
  - Anaemia [Not Recovered/Not Resolved]
